FAERS Safety Report 17167196 (Version 1)
Quarter: 2019Q4

REPORT INFORMATION
  Report Type: Spontaneous
  Country: US (occurrence: US)
  Receive Date: 20191217
  Receipt Date: 20191217
  Transmission Date: 20200122
  Serious: Yes (Other)
  Sender: FDA-Public Use
  Company Number: None

PATIENT
  Age: 56 Year
  Sex: Female
  Weight: 69.3 kg

DRUGS (14)
  1. XOPENEX INHALER + NEBULIZER [Concomitant]
  2. BIOTIN [Concomitant]
     Active Substance: BIOTIN
  3. TYLENOL [Concomitant]
     Active Substance: ACETAMINOPHEN
  4. XXXXRARELTO [Concomitant]
  5. TRAMADOL. [Concomitant]
     Active Substance: TRAMADOL
  6. LEVALBURTEROL HCL [Concomitant]
  7. XARELTO [Suspect]
     Active Substance: RIVAROXABAN
     Indication: DEEP VEIN THROMBOSIS
     Dosage: ?          QUANTITY:1 TABLET(S);?
     Route: 048
     Dates: start: 20190904, end: 20191216
  8. PREDNISONE. [Concomitant]
     Active Substance: PREDNISONE
  9. TYLENOL PM [Concomitant]
     Active Substance: ACETAMINOPHEN\DIPHENHYDRAMINE
  10. KLONOPIN [Concomitant]
     Active Substance: CLONAZEPAM
  11. SENSODYNE [Suspect]
     Active Substance: POTASSIUM NITRATE\SODIUM FLUORIDE
  12. LOSARTON [Concomitant]
  13. ADVAIR HFA [Concomitant]
     Active Substance: FLUTICASONE PROPIONATE\SALMETEROL XINAFOATE
  14. ESTRADOL [Concomitant]

REACTIONS (10)
  - Arthralgia [None]
  - Water pollution [None]
  - Cheilitis [None]
  - Oedema peripheral [None]
  - Thrombosis [None]
  - Lip dry [None]
  - Hypersensitivity [None]
  - Lip swelling [None]
  - Lip blister [None]
  - Candida infection [None]

NARRATIVE: CASE EVENT DATE: 20191010
